FAERS Safety Report 18471065 (Version 1)
Quarter: 2020Q4

REPORT INFORMATION
  Report Type: Spontaneous
  Country: US (occurrence: US)
  Receive Date: 20201105
  Receipt Date: 20201105
  Transmission Date: 20210114
  Serious: Yes (Other)
  Sender: FDA-Public Use
  Company Number: US-PURDUE PHARMA-USA-2020-0159823

PATIENT

DRUGS (1)
  1. OXYCONTIN [Suspect]
     Active Substance: OXYCODONE HYDROCHLORIDE
     Indication: LIMB INJURY
     Dosage: UNK
     Route: 048
     Dates: start: 20170707

REACTIONS (7)
  - Quality of life decreased [Unknown]
  - Impulsive behaviour [Unknown]
  - Product quality issue [Unknown]
  - Drug dependence [Unknown]
  - Judgement impaired [Unknown]
  - Injury [Unknown]
  - Pain [Unknown]
